FAERS Safety Report 22202603 (Version 2)
Quarter: 2023Q2

REPORT INFORMATION
  Report Type: Report from Study
  Country: MX (occurrence: MX)
  Receive Date: 20230412
  Receipt Date: 20230426
  Transmission Date: 20230721
  Serious: Yes (Other)
  Sender: FDA-Public Use
  Company Number: MX-002147023-NVSC2023MX081631

PATIENT
  Age: 49 Year
  Sex: Female
  Weight: 80 kg

DRUGS (4)
  1. DIOVAN [Suspect]
     Active Substance: VALSARTAN
     Indication: Hypertension
     Dosage: 1 DOSAGE FORM, QD (320MG)
     Route: 048
     Dates: start: 202206, end: 20230401
  2. DIOVAN [Suspect]
     Active Substance: VALSARTAN
     Dosage: 1 DOSAGE FORM, BID (160 MG) (EVERY 12 HOURS)
     Route: 048
     Dates: start: 20230402, end: 202304
  3. DIOVAN [Suspect]
     Active Substance: VALSARTAN
     Dosage: 2 DOSAGE FORM, QD (160 MG)
     Route: 048
     Dates: start: 202304
  4. KARET [Concomitant]
     Indication: Thyroid disorder
     Dosage: 0.5 DOSAGE FORM, QD (? OF 100 MG) (13 YEARS AGO)
     Route: 048

REACTIONS (3)
  - Hypertension [Not Recovered/Not Resolved]
  - Product availability issue [Unknown]
  - Off label use [Unknown]

NARRATIVE: CASE EVENT DATE: 20230401
